FAERS Safety Report 7288453-5 (Version None)
Quarter: 2011Q1

REPORT INFORMATION
  Report Type: 
  Country: None (occurrence: None)
  Receive Date: 20110211
  Receipt Date: 20110207
  Transmission Date: 20110831
  Serious: Yes (Other)
  Sender: FDA-Public Use
  Company Number: B0685046A

PATIENT
  Age: 43 Year
  Sex: Male
  Weight: 90 kg

DRUGS (3)
  1. WELLBUTRIN [Suspect]
     Indication: ATTENTION DEFICIT/HYPERACTIVITY DISORDER
     Dosage: 300MG PER DAY
     Route: 065
     Dates: start: 20100101
  2. LAMICTAL [Concomitant]
     Dosage: 100MG PER DAY
     Dates: start: 20090101
  3. MIRTAZAPINE [Concomitant]
     Dosage: 45MG PER DAY
     Dates: start: 20090101

REACTIONS (2)
  - DENTAL CARIES [None]
  - OFF LABEL USE [None]
